FAERS Safety Report 5190446-9 (Version None)
Quarter: 2006Q4

REPORT INFORMATION
  Report Type: 
  Country: None (occurrence: None)
  Receive Date: 20061222
  Receipt Date: 20061212
  Transmission Date: 20070319
  Serious: Yes (Death)
  Sender: FDA-Public Use
  Company Number: KR-ROCHE-474956

PATIENT
  Age: 68 Year
  Sex: Male
  Weight: 63.5 kg

DRUGS (14)
  1. CAPECITABINE [Suspect]
     Route: 048
     Dates: start: 20061108, end: 20061127
  2. CAPECITABINE [Suspect]
     Route: 048
     Dates: start: 20061030, end: 20061103
  3. BEVACIZUMAB [Suspect]
     Route: 042
     Dates: start: 20061121
  4. BEVACIZUMAB [Suspect]
     Route: 042
     Dates: start: 20061030, end: 20061030
  5. OXALIPLATIN [Suspect]
     Route: 042
     Dates: start: 20061121
  6. OXALIPLATIN [Suspect]
     Route: 042
     Dates: start: 20061030, end: 20061030
  7. AMLODIPINE [Concomitant]
     Dates: start: 20061028
  8. LORAZEPAM [Concomitant]
     Dates: start: 20061030, end: 20061031
  9. RANITIDINE [Concomitant]
     Dates: start: 20061030, end: 20061124
  10. ONDANSETRON HCL [Concomitant]
     Dates: start: 20061031, end: 20061126
  11. MAGNESIUM OXIDE [Concomitant]
     Dates: start: 20061103, end: 20061103
  12. NITROGLYCERIN [Concomitant]
     Dates: start: 20061103, end: 20061202
  13. MEGESTROL ACETATE [Concomitant]
     Dates: start: 20061103, end: 20061126
  14. DEXAMETHASONE [Concomitant]
     Dates: start: 20061030, end: 20061124

REACTIONS (4)
  - ANOREXIA [None]
  - CHEST PAIN [None]
  - MYOCARDIAL ISCHAEMIA [None]
  - THERAPY NON-RESPONDER [None]
